FAERS Safety Report 10073839 (Version 1)
Quarter: 2014Q2

REPORT INFORMATION
  Report Type: Spontaneous
  Country: DE (occurrence: DE)
  Receive Date: 20140411
  Receipt Date: 20140411
  Transmission Date: 20141212
  Serious: Yes (Hospitalization)
  Sender: FDA-Public Use
  Company Number: DE-ASTRAZENECA-2014SE24200

PATIENT
  Age: 27807 Day
  Sex: Male
  Weight: 114 kg

DRUGS (10)
  1. NEXIUM [Suspect]
     Route: 042
     Dates: end: 20140320
  2. YOMOGI [Concomitant]
     Route: 050
  3. VAGIMID [Concomitant]
     Route: 050
  4. EBRANTIL [Concomitant]
     Route: 050
  5. AMBROXOL [Concomitant]
     Route: 050
  6. ESPUMISAN [Concomitant]
     Route: 050
  7. MOTILIUM [Concomitant]
     Route: 050
  8. NAC [Concomitant]
     Dosage: 600, 1 DF, DAILY
     Route: 050
  9. RANITIC [Concomitant]
     Route: 042
  10. OLIMEL [Concomitant]

REACTIONS (2)
  - Myoglobin blood increased [Recovered/Resolved]
  - Rhabdomyolysis [Unknown]
